FAERS Safety Report 11553679 (Version 1)
Quarter: 2015Q3

REPORT INFORMATION
  Report Type: Spontaneous
  Country: US (occurrence: US)
  Receive Date: 20150903
  Receipt Date: 20150903
  Transmission Date: 20151125
  Serious: No
  Sender: FDA-Public Use
  Company Number: US-ELI_LILLY_AND_COMPANY-US201007003907

PATIENT
  Age: 81 Year
  Sex: Female

DRUGS (5)
  1. HUMALOG MIX75/25 [Suspect]
     Active Substance: INSULIN LISPRO
     Dosage: 26 U, EACH MORNING
  2. HUMALOG MIX75/25 [Suspect]
     Active Substance: INSULIN LISPRO
     Dosage: 28 U, EACH EVENING
  3. HUMALOG MIX75/25 [Suspect]
     Active Substance: INSULIN LISPRO
     Dosage: 26 U, EACH EVENING
  4. HUMALOG MIX75/25 [Suspect]
     Active Substance: INSULIN LISPRO
     Indication: DIABETES MELLITUS
     Dosage: 26 U, EACH MORNING
  5. HUMALOG MIX75/25 [Suspect]
     Active Substance: INSULIN LISPRO
     Dosage: 28 U, EACH EVENING

REACTIONS (5)
  - Incorrect dose administered [Recovered/Resolved]
  - Muscle spasms [Recovered/Resolved]
  - Blood glucose decreased [Recovered/Resolved]
  - Drug dispensing error [Recovered/Resolved]
  - Hyperhidrosis [Recovered/Resolved]

NARRATIVE: CASE EVENT DATE: 20100613
